FAERS Safety Report 10272843 (Version 1)
Quarter: 2014Q2

REPORT INFORMATION
  Report Type: Spontaneous
  Country: US (occurrence: None)
  Receive Date: 20140627
  Receipt Date: 20140627
  Transmission Date: 20141212
  Serious: Yes (Life-Threatening, Hospitalization, Disabling)
  Sender: FDA-Public Use
  Company Number: None

PATIENT
  Age: 71 Year
  Sex: Male
  Weight: 102 kg

DRUGS (1)
  1. IMBRUVICA [Suspect]
     Indication: MANTLE CELL LYMPHOMA
     Dosage: 560MG (4 TABS) ?QD?ORAL
     Route: 048
     Dates: start: 20131001, end: 20140303

REACTIONS (3)
  - Hypotension [None]
  - Aspiration [None]
  - Renal failure acute [None]
